FAERS Safety Report 5691829-0 (Version None)
Quarter: 2008Q2

REPORT INFORMATION
  Report Type: 
  Country: None (occurrence: None)
  Receive Date: 20080401
  Receipt Date: 20080401
  Transmission Date: 20081010
  Serious: Yes (Life-Threatening, Other)
  Sender: FDA-Public Use
  Company Number: None

PATIENT
  Age: 30 Year
  Sex: Male
  Weight: 77.1115 kg

DRUGS (2)
  1. SINGULAIR [Suspect]
     Indication: ASTHMA
     Dosage: 10MG ONCE A DAY, NIGHT PO
     Route: 048
     Dates: start: 20040925, end: 20080329
  2. SINGULAIR [Suspect]
     Indication: MULTIPLE ALLERGIES
     Dosage: 10MG ONCE A DAY, NIGHT PO
     Route: 048
     Dates: start: 20040925, end: 20080329

REACTIONS (16)
  - ABNORMAL DREAMS [None]
  - AGGRESSION [None]
  - AGITATION [None]
  - ANGER [None]
  - ANXIETY [None]
  - BRUXISM [None]
  - DEPRESSION [None]
  - FATIGUE [None]
  - HEADACHE [None]
  - INSOMNIA [None]
  - MUSCLE SPASMS [None]
  - OBSESSIVE THOUGHTS [None]
  - PALPITATIONS [None]
  - STRESS [None]
  - SUICIDAL IDEATION [None]
  - TINNITUS [None]
